FAERS Safety Report 5029196-8 (Version None)
Quarter: 2006Q2

REPORT INFORMATION
  Report Type: 
  Country: None (occurrence: None)
  Receive Date: 20060615
  Receipt Date: 20060615
  Transmission Date: 20061013
  Serious: Yes (Life-Threatening, Hospitalization)
  Sender: FDA-Public Use
  Company Number: None

PATIENT
  Age: 49 Year
  Sex: Female
  Weight: 59.8748 kg

DRUGS (2)
  1. CLONIDINE [Suspect]
     Indication: HYPERTENSION
     Dosage: .05 MG AS NEEDED PO
     Route: 048
     Dates: start: 20060310, end: 20060614
  2. CLONIDINE [Suspect]
     Dosage: .05 MG DAILY PO
     Route: 048
     Dates: start: 20060523, end: 20060614

REACTIONS (5)
  - BLOOD PRESSURE INCREASED [None]
  - CONDITION AGGRAVATED [None]
  - DRUG INTERACTION [None]
  - RASH [None]
  - URTICARIA [None]
